FAERS Safety Report 4899960-4 (Version None)
Quarter: 2006Q1

REPORT INFORMATION
  Report Type: 
  Country: None (occurrence: None)
  Receive Date: 20060131
  Receipt Date: 20060119
  Transmission Date: 20060701
  Serious: Yes (Hospitalization)
  Sender: FDA-Public Use
  Company Number: 2006PV007274

PATIENT
  Age: 71 Year
  Sex: Female

DRUGS (3)
  1. BYETTA [Suspect]
     Indication: DIABETES MELLITUS NON-INSULIN-DEPENDENT
     Dosage: 10 MCG, BID; SC; 5 MCG, BID; SC
     Route: 058
     Dates: start: 20051101, end: 20051127
  2. BYETTA [Suspect]
     Indication: DIABETES MELLITUS NON-INSULIN-DEPENDENT
     Dosage: 10 MCG, BID; SC; 5 MCG, BID; SC
     Route: 058
     Dates: start: 20060118
  3. METFORMIN [Concomitant]

REACTIONS (2)
  - BACK PAIN [None]
  - CONDITION AGGRAVATED [None]
